FAERS Safety Report 24353569 (Version 1)
Quarter: 2024Q3

REPORT INFORMATION
  Report Type: Spontaneous
  Country: US (occurrence: US)
  Receive Date: 20240923
  Receipt Date: 20240923
  Transmission Date: 20241016
  Serious: No
  Sender: VIFOR
  Company Number: US-Vifor (International) Inc.-VIT-2024-07750

PATIENT

DRUGS (1)
  1. VELTASSA [Suspect]
     Active Substance: PATIROMER
     Indication: Product used for unknown indication
     Dosage: 1 PACKET ONCE A WEEK

REACTIONS (1)
  - Off label use [Unknown]
